FAERS Safety Report 14457114 (Version 2)
Quarter: 2018Q2

REPORT INFORMATION
  Report Type: Other
  Country: CA (occurrence: CA)
  Receive Date: 20180130
  Receipt Date: 20180422
  Transmission Date: 20180711
  Serious: Yes (Other)
  Sender: FDA-Public Use
  Company Number: CA-APOTEX-2018AP005829

PATIENT
  Age: 52 Year
  Sex: Female

DRUGS (2)
  1. FLUTICASONE PROPIONATE W/SALMETEROL XINAFOATE [Suspect]
     Active Substance: FLUTICASONE PROPIONATE\SALMETEROL XINAFOATE
     Indication: PRODUCT USED FOR UNKNOWN INDICATION
     Route: 065
  2. SALBUTAMOL [Suspect]
     Active Substance: ALBUTEROL
     Indication: PRODUCT USED FOR UNKNOWN INDICATION
     Route: 065

REACTIONS (14)
  - Chronic fatigue syndrome [Unknown]
  - Pain [Unknown]
  - Urinary incontinence [Unknown]
  - Epstein-Barr virus infection [Unknown]
  - Bronchiectasis [Unknown]
  - Bladder prolapse [Unknown]
  - Hysterectomy [Unknown]
  - Neoplasm [Unknown]
  - Complex regional pain syndrome [Unknown]
  - Fibromyalgia [Unknown]
  - Bronchitis chronic [Unknown]
  - Major depression [Unknown]
  - Pulmonary hypertension [Unknown]
  - Hypertension [Unknown]
